FAERS Safety Report 8285025 (Version 6)
Quarter: 2015Q2

REPORT INFORMATION
  Report Type: Spontaneous
  Country: US (occurrence: US)
  Receive Date: 20111212
  Receipt Date: 20150415
  Transmission Date: 20150821
  Serious: Yes (Hospitalization, Congenital Anomaly, Other)
  Sender: FDA-Public Use
  Company Number: US-PFIZER INC-2011297709

PATIENT
  Sex: Male
  Weight: 4 kg

DRUGS (15)
  1. EFFEXOR [Suspect]
     Active Substance: VENLAFAXINE HYDROCHLORIDE
     Indication: POSTPARTUM DEPRESSION
     Dosage: UNK
     Route: 064
     Dates: start: 200201
  2. GUAIFENESIN. [Concomitant]
     Active Substance: GUAIFENESIN
     Indication: NASAL CONGESTION
  3. PRENATAL VITAMINS [Concomitant]
     Active Substance: VITAMINS
     Dosage: 1 DF, DAILY
     Route: 064
  4. TYLENOL [Concomitant]
     Active Substance: ACETAMINOPHEN
     Dosage: UNK
     Route: 064
  5. EFFEXOR [Suspect]
     Active Substance: VENLAFAXINE HYDROCHLORIDE
     Dosage: 35 MG, UNK
     Route: 064
  6. PSEUDOEPHEDRINE [Concomitant]
     Active Substance: PSEUDOEPHEDRINE
     Indication: DYSPNOEA
     Dosage: UNK
     Route: 064
  7. EFFEXOR [Suspect]
     Active Substance: VENLAFAXINE HYDROCHLORIDE
     Indication: ANXIETY
     Dosage: 112.5 MG, UNK
     Route: 064
     Dates: end: 200411
  8. EFFEXOR [Suspect]
     Active Substance: VENLAFAXINE HYDROCHLORIDE
     Dosage: UNK, SAMPLES
     Route: 064
     Dates: start: 20050916
  9. NASAL SALINE [Concomitant]
     Active Substance: SODIUM CHLORIDE
     Indication: NASAL DRYNESS
  10. EFFEXOR [Suspect]
     Active Substance: VENLAFAXINE HYDROCHLORIDE
     Dosage: 37.5 MG, UNK
     Route: 064
     Dates: start: 20050915
  11. GUAIFENESIN. [Concomitant]
     Active Substance: GUAIFENESIN
     Indication: DYSPNOEA
     Dosage: UNK
     Route: 064
  12. PSEUDOEPHEDRINE [Concomitant]
     Active Substance: PSEUDOEPHEDRINE
     Indication: NASAL CONGESTION
  13. EFFEXOR [Suspect]
     Active Substance: VENLAFAXINE HYDROCHLORIDE
     Indication: DEPRESSION
     Dosage: 150 MG, UNK
     Route: 064
     Dates: start: 2002
  14. EFFEXOR [Suspect]
     Active Substance: VENLAFAXINE HYDROCHLORIDE
     Dosage: 75 MG, UNK
     Route: 064
     Dates: start: 20050406, end: 20050915
  15. NASAL SALINE [Concomitant]
     Active Substance: SODIUM CHLORIDE
     Indication: NASAL CONGESTION
     Dosage: UNK
     Route: 064

REACTIONS (8)
  - Coarctation of the aorta [Unknown]
  - Electrocardiogram QT prolonged [Recovered/Resolved]
  - Congenital aortic dilatation [Unknown]
  - Atrial septal defect [Unknown]
  - Bicuspid aortic valve [Unknown]
  - Tachypnoea [Unknown]
  - Maternal exposure during pregnancy [Unknown]
  - Congenital anomaly [Unknown]

NARRATIVE: CASE EVENT DATE: 20060804
